FAERS Safety Report 12671193 (Version 1)
Quarter: 2016Q3

REPORT INFORMATION
  Report Type: Spontaneous
  Country: US (occurrence: US)
  Receive Date: 20160822
  Receipt Date: 20160822
  Transmission Date: 20161109
  Serious: No
  Sender: FDA-Public Use
  Company Number: US-AUROBINDO-AUR-APU-2016-06315

PATIENT
  Age: 55 Year
  Sex: Male

DRUGS (1)
  1. TERBINAFINE HYDROCHLORIDE TABLETS 250MG [Suspect]
     Active Substance: TERBINAFINE HYDROCHLORIDE
     Indication: FUNGAL INFECTION
     Dosage: 250 MG, ONCE A DAY
     Route: 065
     Dates: start: 20160413

REACTIONS (6)
  - Chest pain [Recovering/Resolving]
  - Dysgeusia [Recovering/Resolving]
  - Flatulence [Recovering/Resolving]
  - Sensation of foreign body [Recovering/Resolving]
  - Dysphagia [Recovering/Resolving]
  - Throat tightness [Recovering/Resolving]
